FAERS Safety Report 18618947 (Version 1)
Quarter: 2020Q4

REPORT INFORMATION
  Report Type: Spontaneous
  Country: US (occurrence: US)
  Receive Date: 20201215
  Receipt Date: 20201215
  Transmission Date: 20210114
  Serious: No
  Sender: FDA-Public Use
  Company Number: US-SUPERNUS PHARMACEUTICALS, INC.-2020SUP00564

PATIENT
  Age: 23 Year
  Sex: Female

DRUGS (1)
  1. OXTELLAR XR [Suspect]
     Active Substance: OXCARBAZEPINE
     Dosage: 1200 MG, 1X/DAY
     Route: 048

REACTIONS (8)
  - Memory impairment [Unknown]
  - Gastrointestinal disorder [Unknown]
  - Cognitive disorder [Unknown]
  - Movement disorder [Unknown]
  - Fatigue [Unknown]
  - Disorientation [Unknown]
  - Balance disorder [Unknown]
  - Asthenia [Unknown]
